FAERS Safety Report 7476134-4 (Version None)
Quarter: 2011Q2

REPORT INFORMATION
  Report Type: 
  Country: None (occurrence: None)
  Receive Date: 20110512
  Receipt Date: 20110510
  Transmission Date: 20111010
  Serious: Yes (Other)
  Sender: FDA-Public Use
  Company Number: US-MERCK-1105USA01699

PATIENT
  Sex: Female

DRUGS (2)
  1. FOSAMAX [Suspect]
     Route: 048
     Dates: start: 20010101, end: 20090101
  2. FOSAMAX [Suspect]
     Route: 048
     Dates: start: 20010101, end: 20090101

REACTIONS (1)
  - FEMUR FRACTURE [None]
